FAERS Safety Report 6216501-X (Version None)
Quarter: 2009Q2

REPORT INFORMATION
  Report Type: 
  Country: None (occurrence: None)
  Receive Date: 20090605
  Receipt Date: 20090603
  Transmission Date: 20091009
  Serious: Yes (Hospitalization)
  Sender: FDA-Public Use
  Company Number: FR-MERCK-0810FRA00032

PATIENT
  Age: 49 Year
  Sex: Female

DRUGS (7)
  1. PRIMAXIN [Suspect]
     Indication: INFECTION
     Route: 042
     Dates: start: 20080827, end: 20080908
  2. AMIODARONE [Concomitant]
     Indication: TACHYCARDIA
     Route: 048
     Dates: start: 20080905, end: 20080907
  3. AMIODARONE [Concomitant]
     Indication: ARRHYTHMIA
     Route: 048
     Dates: start: 20080905, end: 20080907
  4. LINEZOLID [Concomitant]
     Indication: INFECTION
     Route: 042
  5. MIDAZOLAM [Concomitant]
     Route: 042
  6. MORPHINE [Concomitant]
     Route: 065
  7. INSULIN [Concomitant]
     Route: 065

REACTIONS (1)
  - CHOLESTASIS [None]
